FAERS Safety Report 17228769 (Version 1)
Quarter: 2020Q1

REPORT INFORMATION
  Report Type: Spontaneous
  Country: US (occurrence: US)
  Receive Date: 20200102
  Receipt Date: 20200102
  Transmission Date: 20200409
  Serious: Yes (Other)
  Sender: FDA-Public Use
  Company Number: None

PATIENT
  Age: 5 Year
  Weight: 14.85 kg

DRUGS (2)
  1. MONTELUKAST 4 MG CHEWABLE TABLET [Concomitant]
     Dates: start: 20190801
  2. MULTIVITAMIN WITH FLUORIDE [Suspect]
     Active Substance: .ALPHA.-TOCOPHEROL\.ALPHA.-TOCOPHEROL ACETATE\.ALPHA.-TOCOPHEROL ACETATE, DL-\ASCORBIC ACID\CHOLECALCIFEROL\COBALAMIN\CYANOCOBALAMIN\FLUORIDE ION\FOLIC ACID\NIACIN\NIACINAMIDE\PYRIDOXINE\PYRIDOXINE HYDROCHLORIDE\RIBOFLAVIN\SODIUM ASCORBATE\SODIUM FLUORIDE\THIAMINE\THIAMINE MONONITRATE\VITAMIN A\VITA
     Route: 048
     Dates: start: 20200102, end: 20200102

REACTIONS (5)
  - Rash [None]
  - Urticaria [None]
  - External ear inflammation [None]
  - Abdominal pain upper [None]
  - Erythema [None]

NARRATIVE: CASE EVENT DATE: 20200102
